FAERS Safety Report 5586647-8 (Version None)
Quarter: 2008Q1

REPORT INFORMATION
  Report Type: 
  Country: None (occurrence: None)
  Receive Date: 20080110
  Receipt Date: 20070927
  Transmission Date: 20080703
  Serious: Yes (Other)
  Sender: FDA-Public Use
  Company Number: US-BAYER-US-2007-036465

PATIENT
  Age: 43 Year
  Sex: Female
  Weight: 61 kg

DRUGS (2)
  1. YAZ [Suspect]
     Indication: PREMENSTRUAL SYNDROME
     Route: 048
     Dates: start: 20070618, end: 20070908
  2. KLONOPIN [Concomitant]
     Route: 048
     Dates: start: 20030101

REACTIONS (1)
  - THROMBOPHLEBITIS SUPERFICIAL [None]
